FAERS Safety Report 17155637 (Version 2)
Quarter: 2020Q2

REPORT INFORMATION
  Report Type: Spontaneous
  Country: FR (occurrence: FR)
  Receive Date: 20191215
  Receipt Date: 20200605
  Transmission Date: 20200713
  Serious: Yes (Death, Hospitalization, Other)
  Sender: FDA-Public Use
  Company Number: FR-SA-2019SA337943

PATIENT

DRUGS (28)
  1. MOLSIDOMINE [Suspect]
     Active Substance: MOLSIDOMINE
     Dosage: 8 MG, QD
     Route: 048
  2. MOLSIDOMINE [Suspect]
     Active Substance: MOLSIDOMINE
     Route: 048
  3. LANTUS [Suspect]
     Active Substance: INSULIN GLARGINE
     Indication: TYPE 2 DIABETES MELLITUS
     Dosage: UNK UNK, UNK
     Route: 058
  4. RAMIPRIL. [Suspect]
     Active Substance: RAMIPRIL
     Dosage: 2 MG, QD
     Route: 048
  5. ZOPICLONE [Suspect]
     Active Substance: ZOPICLONE
     Dosage: 1 PATCH/DAY
     Route: 023
  6. FUROSEMIDE. [Suspect]
     Active Substance: FUROSEMIDE
     Route: 048
  7. MORPHINE SULFATE. [Suspect]
     Active Substance: MORPHINE SULFATE
     Dosage: 80 MG, QD
     Route: 048
  8. PARACETAMOL [Suspect]
     Active Substance: ACETAMINOPHEN
     Route: 048
  9. LANTUS [Suspect]
     Active Substance: INSULIN GLARGINE
     Route: 058
  10. ZOPICLONE [Suspect]
     Active Substance: ZOPICLONE
     Dosage: 1 PATCH/JOUR
     Route: 023
  11. BETAXOLOL HYDROCHLORIDE. [Suspect]
     Active Substance: BETAXOLOL HYDROCHLORIDE
     Dosage: 20 MG, QD
     Route: 048
     Dates: end: 20191114
  12. DICLOFENAC [Suspect]
     Active Substance: DICLOFENAC
     Route: 048
     Dates: end: 20191112
  13. PARACETAMOL [Suspect]
     Active Substance: ACETAMINOPHEN
     Dosage: UNK UNK, UNK
     Route: 048
  14. LORMETAZEPAM [Suspect]
     Active Substance: LORMETAZEPAM
     Dosage: 2.5 MG, QD
     Route: 048
  15. OMEPRAZOLE. [Suspect]
     Active Substance: OMEPRAZOLE
     Indication: RESTLESS LEGS SYNDROME
     Dosage: 4 MG, QD
     Route: 048
  16. FOLIC ACID. [Suspect]
     Active Substance: FOLIC ACID
     Dosage: 10 MG, QD
     Route: 048
  17. LORMETAZEPAM [Suspect]
     Active Substance: LORMETAZEPAM
     Route: 048
  18. METFORMIN HYDROCHLORIDE. [Suspect]
     Active Substance: METFORMIN HYDROCHLORIDE
     Indication: TYPE 2 DIABETES MELLITUS
     Dosage: 1000 MG, QD
     Route: 048
     Dates: end: 20191114
  19. FUROSEMIDE. [Suspect]
     Active Substance: FUROSEMIDE
     Dosage: 20 MG, QD
     Route: 048
  20. RAMIPRIL. [Suspect]
     Active Substance: RAMIPRIL
     Route: 048
  21. GLYCERYL TRINITRATE [Suspect]
     Active Substance: NITROGLYCERIN
     Dosage: 7.5 MG, QD
     Route: 048
     Dates: end: 20191112
  22. MORPHINE SULFATE. [Suspect]
     Active Substance: MORPHINE SULFATE
     Dosage: UNK UNK, UNK
     Route: 048
  23. DICLOFENAC [Suspect]
     Active Substance: DICLOFENAC
     Dosage: 150 MG, QD
     Route: 048
     Dates: end: 20191112
  24. CEFTRIAXONE. [Suspect]
     Active Substance: CEFTRIAXONE
     Dosage: UNK UNK, UNK
     Route: 065
  25. NICARDIPINE [Suspect]
     Active Substance: NICARDIPINE
     Indication: HYPERTENSION
     Dosage: 100 MG QD
     Route: 048
  26. ROPINIROLE. [Suspect]
     Active Substance: ROPINIROLE
     Dosage: 20 MG, QD
     Route: 048
  27. OMEPRAZOLE. [Suspect]
     Active Substance: OMEPRAZOLE
     Route: 048
  28. FOLIC ACID. [Suspect]
     Active Substance: FOLIC ACID
     Route: 065

REACTIONS (1)
  - Acquired haemophilia [Fatal]

NARRATIVE: CASE EVENT DATE: 20191010
